FAERS Safety Report 14615104 (Version 1)
Quarter: 2018Q1

REPORT INFORMATION
  Report Type: Spontaneous
  Country: US (occurrence: US)
  Receive Date: 20180308
  Receipt Date: 20180308
  Transmission Date: 20180509
  Serious: Yes (Other)
  Sender: FDA-Public Use
  Company Number: US-PFIZER INC-2018091938

PATIENT
  Age: 70 Year
  Sex: Female
  Weight: 63.5 kg

DRUGS (7)
  1. GLIPIZIDE. [Concomitant]
     Active Substance: GLIPIZIDE
     Indication: DIABETES MELLITUS
     Dosage: 5MG TWO TABLETS TWICE PER DAY
  2. ROPINIROLE. [Concomitant]
     Active Substance: ROPINIROLE
     Indication: RESTLESS LEGS SYNDROME
     Dosage: UNK
  3. MELOXICAM. [Concomitant]
     Active Substance: MELOXICAM
     Dosage: UNK
  4. HYDROCODONE [Concomitant]
     Active Substance: HYDROCODONE
     Dosage: UNK
  5. RESTORIL [Concomitant]
     Active Substance: TEMAZEPAM
     Dosage: 15 MG, UNK
  6. LYRICA [Suspect]
     Active Substance: PREGABALIN
     Indication: PAIN
     Dosage: 75MG CAPSULES TWICE PER DAY BY MOUTH
     Route: 048
     Dates: end: 201802
  7. METFORMIN [Concomitant]
     Active Substance: METFORMIN HYDROCHLORIDE
     Indication: TYPE 2 DIABETES MELLITUS
     Dosage: 500MG LONG ACTICTING TWICE PER DAY BY MOUTH
     Route: 048

REACTIONS (10)
  - Herpes zoster [Unknown]
  - Headache [Unknown]
  - Eye pain [Unknown]
  - Syncope [Unknown]
  - Fumbling [Unknown]
  - Feeling abnormal [Unknown]
  - Somnolence [Unknown]
  - Pupillary disorder [Unknown]
  - Gait disturbance [Unknown]
  - Ear pain [Unknown]

NARRATIVE: CASE EVENT DATE: 201802
